FAERS Safety Report 15887163 (Version 6)
Quarter: 2021Q3

REPORT INFORMATION
  Report Type: Spontaneous
  Country: PT (occurrence: PT)
  Receive Date: 20190130
  Receipt Date: 20210803
  Transmission Date: 20211014
  Serious: Yes (Death, Hospitalization, Other)
  Sender: FDA-Public Use
  Company Number: PT-AUROBINDO-AUR-APL-2019-003410

PATIENT
  Age: 92 Year
  Sex: Female

DRUGS (23)
  1. IMIPENEM+CILASTAIN POWDER FOR SOLUTION FOR INFUSION [Suspect]
     Active Substance: CILASTATIN SODIUM\IMIPENEM
     Indication: ENTEROCOCCAL INFECTION
     Dosage: UNK
     Route: 065
  2. VORICONAZOLE. [Suspect]
     Active Substance: VORICONAZOLE
     Indication: NOCARDIOSIS
  3. PIPERACILLIN AND TAZOBACTAM [Concomitant]
     Active Substance: PIPERACILLIN SODIUM\TAZOBACTAM SODIUM
     Indication: SEPSIS
     Dosage: EMPIRICAL ANTIBIOTIC THERAPY
     Route: 065
  4. IMIPENEM+CILASTAIN POWDER FOR SOLUTION FOR INFUSION [Suspect]
     Active Substance: CILASTATIN SODIUM\IMIPENEM
     Indication: INFECTION IN AN IMMUNOCOMPROMISED HOST
  5. IMIPENEM [Suspect]
     Active Substance: IMIPENEM
     Indication: NOCARDIOSIS
  6. AZITHROMYCIN ANHYDROUS. [Concomitant]
     Active Substance: AZITHROMYCIN ANHYDROUS
     Indication: SEPSIS
     Dosage: EMPIRICAL ANTIBIOTIC THERAPY
     Route: 065
  7. LINEZOLID. [Suspect]
     Active Substance: LINEZOLID
     Indication: INFECTION IN AN IMMUNOCOMPROMISED HOST
  8. COTRIMOXAZOLE [Suspect]
     Active Substance: SULFAMETHOXAZOLE\TRIMETHOPRIM
     Indication: ENTEROCOCCAL INFECTION
  9. COTRIMOXAZOLE [Suspect]
     Active Substance: SULFAMETHOXAZOLE\TRIMETHOPRIM
     Indication: INFECTION IN AN IMMUNOCOMPROMISED HOST
  10. IMIPENEM [Suspect]
     Active Substance: IMIPENEM
     Indication: ENTEROCOCCAL INFECTION
     Dosage: UNK
     Route: 065
  11. IMIPENEM+CILASTAIN POWDER FOR SOLUTION FOR INFUSION [Suspect]
     Active Substance: CILASTATIN SODIUM\IMIPENEM
     Indication: NOCARDIOSIS
  12. IMIPENEM+CILASTAIN POWDER FOR SOLUTION FOR INFUSION [Suspect]
     Active Substance: CILASTATIN SODIUM\IMIPENEM
     Indication: ASPERGILLUS INFECTION
  13. CEFTRIAXONE. [Suspect]
     Active Substance: CEFTRIAXONE
     Indication: ASPERGILLUS INFECTION
     Dosage: UNK
     Route: 065
  14. CEFTRIAXONE. [Suspect]
     Active Substance: CEFTRIAXONE
     Indication: NOCARDIOSIS
  15. VORICONAZOLE. [Suspect]
     Active Substance: VORICONAZOLE
     Indication: ASPERGILLUS INFECTION
     Dosage: UNK
     Route: 065
  16. COTRIMOXAZOLE [Suspect]
     Active Substance: SULFAMETHOXAZOLE\TRIMETHOPRIM
     Indication: ASPERGILLUS INFECTION
  17. AZITHROMYCIN ANHYDROUS. [Suspect]
     Active Substance: AZITHROMYCIN ANHYDROUS
     Indication: PNEUMONIA
     Dosage: UNK
     Route: 065
  18. LINEZOLID. [Suspect]
     Active Substance: LINEZOLID
     Indication: NOCARDIOSIS
  19. VORICONAZOLE. [Suspect]
     Active Substance: VORICONAZOLE
     Indication: INFECTION IN AN IMMUNOCOMPROMISED HOST
  20. COTRIMOXAZOLE [Suspect]
     Active Substance: SULFAMETHOXAZOLE\TRIMETHOPRIM
     Indication: NOCARDIOSIS
     Dosage: UNK
     Route: 065
  21. CEFTRIAXONE. [Suspect]
     Active Substance: CEFTRIAXONE
     Indication: INFECTION IN AN IMMUNOCOMPROMISED HOST
  22. LINEZOLID. [Suspect]
     Active Substance: LINEZOLID
     Indication: ASPERGILLUS INFECTION
     Dosage: UNK
     Route: 065
  23. PIPERACILLIN AND TAZOBACTAM [Suspect]
     Active Substance: PIPERACILLIN SODIUM\TAZOBACTAM SODIUM
     Indication: PNEUMONIA
     Dosage: UNK
     Route: 065

REACTIONS (4)
  - Condition aggravated [Fatal]
  - Pneumonia [Fatal]
  - Drug ineffective [Fatal]
  - Multiple organ dysfunction syndrome [Fatal]
